FAERS Safety Report 9050517 (Version 1)
Quarter: 2013Q1

REPORT INFORMATION
  Report Type: Spontaneous
  Country: US (occurrence: US)
  Receive Date: 20130205
  Receipt Date: 20130205
  Transmission Date: 20140127
  Serious: Yes (Other)
  Sender: FDA-Public Use
  Company Number: PHHY2013US009238

PATIENT
  Sex: 0

DRUGS (2)
  1. VALPROIC ACID [Suspect]
     Dosage: 10 MG/KG, DAILY
     Route: 048
  2. DECITABINE [Suspect]
     Dosage: 5 MG/M2, DAILY FOR OVER ONE HOUR
     Route: 042

REACTIONS (1)
  - Neutropenia [Unknown]
